FAERS Safety Report 15295786 (Version 1)
Quarter: 2018Q3

REPORT INFORMATION
  Report Type: Report from Study
  Country: US (occurrence: US)
  Receive Date: 20180820
  Receipt Date: 20180820
  Transmission Date: 20181010
  Serious: Yes (Death, Life-Threatening, Hospitalization, Other)
  Sender: FDA-Public Use
  Company Number: US-AMAG PHARMACEUTICALS, INC.-AMAG201804392

PATIENT
  Age: 35 Year
  Sex: Male
  Weight: 109.3 kg

DRUGS (2)
  1. PROHANCE [Suspect]
     Active Substance: GADOTERIDOL
     Indication: GLIOBLASTOMA
     Dosage: 22 ML, SINGLE
     Route: 042
     Dates: start: 20180806, end: 20180806
  2. FERUMOXYTOL [Suspect]
     Active Substance: FERUMOXYTOL NON-STOICHIOMETRIC MAGNETITE
     Indication: IMAGING PROCEDURE
     Dosage: 510 MG, SINGLE
     Route: 042
     Dates: start: 20180807, end: 20180807

REACTIONS (7)
  - Intracranial pressure increased [Unknown]
  - Bradycardia [Unknown]
  - Brain herniation [Fatal]
  - Hypertension [Unknown]
  - Seizure [Unknown]
  - Brain oedema [Unknown]
  - Cerebral infarction [Unknown]

NARRATIVE: CASE EVENT DATE: 20180808
